FAERS Safety Report 6467326-1 (Version None)
Quarter: 2009Q4

REPORT INFORMATION
  Report Type: 
  Country: None (occurrence: None)
  Receive Date: 20091202
  Receipt Date: 20091125
  Transmission Date: 20100525
  Serious: Yes (Hospitalization)
  Sender: FDA-Public Use
  Company Number: US-ELI_LILLY_AND_COMPANY-US200906002635

PATIENT
  Sex: Female
  Weight: 97.959 kg

DRUGS (12)
  1. BYETTA [Suspect]
     Indication: TYPE 2 DIABETES MELLITUS
     Dosage: 5 U, 2/D
     Route: 058
     Dates: start: 20080311, end: 20090417
  2. BYETTA [Suspect]
     Dates: start: 20090420, end: 20090101
  3. METFORMIN HCL [Concomitant]
     Dosage: 500 MG, 2/D
     Route: 048
     Dates: end: 20090417
  4. METFORMIN HCL [Concomitant]
     Dosage: 500 MG, 2/D
     Route: 048
     Dates: start: 20090420
  5. GLIPIZIDE [Concomitant]
     Dates: end: 20090417
  6. GLIPIZIDE [Concomitant]
     Dosage: UNK, UNK
     Dates: start: 20090420
  7. HYDROCHLOROTHIAZIDE [Concomitant]
     Dosage: 12.5 MG, DAILY (1/D)
     Dates: end: 20090417
  8. HYDROCHLOROTHIAZIDE [Concomitant]
     Dosage: 12.5 MG, DAILY (1/D)
     Dates: start: 20090420
  9. LOPRESSOR [Concomitant]
     Dosage: 50 MG, 2/D
     Route: 048
  10. OMEPRAZOLE [Concomitant]
     Indication: GASTROOESOPHAGEAL REFLUX DISEASE
     Dosage: UNK, DAILY (1/D)
  11. LIPITOR [Concomitant]
     Dosage: 20 MG, DAILY (1/D)
     Route: 048
  12. HEPARIN [Concomitant]
     Indication: THROMBOSIS PROPHYLAXIS
     Dates: start: 20090401, end: 20090401

REACTIONS (2)
  - PANCREATITIS [None]
  - WEIGHT DECREASED [None]
